FAERS Safety Report 5576391-5 (Version None)
Quarter: 2007Q4

REPORT INFORMATION
  Report Type: 
  Country: None (occurrence: None)
  Receive Date: 20071228
  Receipt Date: 20071213
  Transmission Date: 20080405
  Serious: Yes (Other)
  Sender: FDA-Public Use
  Company Number: JP-ASTRAZENECA-2007AP07235

PATIENT
  Age: 21792 Day
  Sex: Male

DRUGS (7)
  1. SEROQUEL [Suspect]
     Indication: SCHIZOPHRENIA
     Route: 048
     Dates: start: 20060107, end: 20071030
  2. SEROQUEL [Suspect]
     Route: 048
     Dates: start: 20071031, end: 20071106
  3. LEVOTOMIN [Suspect]
     Indication: SCHIZOPHRENIA
     Route: 048
     Dates: start: 20051224
  4. LODOPIN [Suspect]
     Indication: SCHIZOPHRENIA
     Route: 048
     Dates: start: 20051210
  5. NITRAZEPAM [Concomitant]
     Indication: INSOMNIA
  6. SEPAZON [Concomitant]
     Indication: ANXIETY
     Route: 048
  7. AKINETON [Concomitant]
     Indication: PARKINSONISM
     Route: 048
     Dates: start: 20060701

REACTIONS (7)
  - ALANINE AMINOTRANSFERASE INCREASED [None]
  - ASPARTATE AMINOTRANSFERASE INCREASED [None]
  - BLOOD ALKALINE PHOSPHATASE INCREASED [None]
  - GAMMA-GLUTAMYLTRANSFERASE INCREASED [None]
  - HALLUCINATION, AUDITORY [None]
  - HEPATIC FUNCTION ABNORMAL [None]
  - LIVER DISORDER [None]
